FAERS Safety Report 4983174-3 (Version None)
Quarter: 2006Q2

REPORT INFORMATION
  Report Type: 
  Country: None (occurrence: None)
  Receive Date: 20060426
  Receipt Date: 20060227
  Transmission Date: 20061013
  Serious: Yes (Hospitalization)
  Sender: FDA-Public Use
  Company Number: US-GLAXOSMITHKLINE-A0595305A

PATIENT
  Age: 63 Year
  Sex: Male

DRUGS (7)
  1. VALTREX [Suspect]
     Route: 048
     Dates: start: 20060217
  2. ZELNORM [Concomitant]
  3. GLYCOLAX [Concomitant]
  4. ZOCOR [Concomitant]
  5. RITALIN [Concomitant]
  6. DIAZEPAM [Concomitant]
  7. METHENAMINE [Concomitant]

REACTIONS (2)
  - INTESTINAL FUNCTIONAL DISORDER [None]
  - THERAPEUTIC RESPONSE UNEXPECTED [None]
